FAERS Safety Report 16722593 (Version 1)
Quarter: 2019Q3

REPORT INFORMATION
  Report Type: Spontaneous
  Country: CN (occurrence: CN)
  Receive Date: 20190820
  Receipt Date: 20190820
  Transmission Date: 20191005
  Serious: Yes (Hospitalization, Other)
  Sender: FDA-Public Use
  Company Number: CN-BAXTER-2019BAX015942

PATIENT
  Age: 27 Year
  Sex: Male
  Weight: 70 kg

DRUGS (4)
  1. CISATRACURIUM BESILATE [Suspect]
     Active Substance: CISATRACURIUM BESYLATE
     Indication: SEDATIVE THERAPY
     Route: 042
     Dates: start: 20190802, end: 20190802
  2. XIN TAILIN (CEFAZOLIN SODIUM PENTAHYDRATE) [Suspect]
     Active Substance: CEFAZOLIN SODIUM PENTAHYDRATE
     Indication: PROPHYLAXIS
     Route: 041
     Dates: start: 20190802, end: 20190802
  3. 20% MANNITOL INJECTION [Suspect]
     Active Substance: MANNITOL
     Indication: DEHYDRATION
     Route: 041
     Dates: start: 20190802, end: 20190802
  4. DIPRIVAN [Suspect]
     Active Substance: PROPOFOL
     Indication: SEDATIVE THERAPY
     Route: 042
     Dates: start: 20190802, end: 20190802

REACTIONS (3)
  - Anaphylactic shock [Recovering/Resolving]
  - Epilepsy [Unknown]
  - Urine output decreased [Unknown]

NARRATIVE: CASE EVENT DATE: 201908
